FAERS Safety Report 8336579-7 (Version None)
Quarter: 2012Q2

REPORT INFORMATION
  Report Type: 
  Country: None (occurrence: None)
  Receive Date: 20120504
  Receipt Date: 20120427
  Transmission Date: 20120825
  Serious: Yes (Other)
  Sender: FDA-Public Use
  Company Number: US-ASTELLAS-2012US004296

PATIENT
  Sex: Male
  Weight: 66 kg

DRUGS (12)
  1. NOVOLOG [Concomitant]
     Indication: DIABETES MELLITUS
     Dosage: UNK
     Route: 065
  2. METFORMIN HCL [Concomitant]
     Indication: DIABETES MELLITUS
     Dosage: 500 MG, TID
     Route: 048
  3. PREDNISONE TAB [Concomitant]
     Indication: LIVER TRANSPLANT
     Dosage: UNK
     Route: 065
  4. SIROLIMUS [Concomitant]
     Indication: LIVER TRANSPLANT
     Dosage: 1 MG, QID
     Route: 048
  5. URSODIOL [Concomitant]
     Indication: PRODUCT USED FOR UNKNOWN INDICATION
     Dosage: 500 MG, TID
     Route: 048
  6. TRAMADOL HCL [Concomitant]
     Indication: HEADACHE
  7. PEGASYS [Concomitant]
     Indication: PRODUCT USED FOR UNKNOWN INDICATION
     Dosage: UNK
     Route: 065
  8. PROGRAF [Suspect]
     Indication: LIVER TRANSPLANT
     Dosage: 1 MG, QID
     Route: 048
     Dates: start: 20051225
  9. TRAMADOL HCL [Concomitant]
     Indication: ABDOMINAL PAIN
     Dosage: 100 MG, TID
     Route: 048
  10. IBUPROFEN (ADVIL) [Concomitant]
     Indication: PRODUCT USED FOR UNKNOWN INDICATION
     Dosage: UNK
     Route: 065
  11. LANTUS [Concomitant]
     Indication: DIABETES MELLITUS
     Dosage: UNK
     Route: 065
  12. NAPROXEN (ALEVE) [Concomitant]
     Indication: PRODUCT USED FOR UNKNOWN INDICATION
     Dosage: UNK
     Route: 065

REACTIONS (1)
  - LIVER TRANSPLANT [None]
